FAERS Safety Report 21234806 (Version 2)
Quarter: 2022Q3

REPORT INFORMATION
  Report Type: Spontaneous
  Country: US (occurrence: US)
  Receive Date: 20220820
  Receipt Date: 20220914
  Transmission Date: 20221027
  Serious: Yes (Hospitalization, Other)
  Sender: FDA-Public Use
  Company Number: US-BRISTOL-MYERS SQUIBB COMPANY-2022-091309

PATIENT
  Age: 87 Year
  Sex: Female

DRUGS (2)
  1. REVLIMID [Suspect]
     Active Substance: LENALIDOMIDE
     Indication: Plasma cell myeloma
     Dosage: TAKE 1 CAPSULE BY MOUTH EVERY DAY FOR 21 DAYS OUT OF A 28 DAYS CYCLE
     Route: 048
     Dates: start: 20220121
  2. REVLIMID [Suspect]
     Active Substance: LENALIDOMIDE
     Dosage: DAILY FOR 21 DAYS OUT OF A 28 DAYS.
     Route: 048
     Dates: start: 20220121

REACTIONS (3)
  - Thrombosis [Recovered/Resolved]
  - Localised infection [Recovered/Resolved]
  - Fall [Recovered/Resolved]
